FAERS Safety Report 22918845 (Version 2)
Quarter: 2023Q4

REPORT INFORMATION
  Report Type: Spontaneous
  Country: JP (occurrence: JP)
  Receive Date: 20230907
  Receipt Date: 20231108
  Transmission Date: 20240109
  Serious: Yes (Death, Hospitalization, Other)
  Sender: FDA-Public Use
  Company Number: JP-MSD-M2023-29880

PATIENT
  Age: 67 Year
  Sex: Male

DRUGS (6)
  1. KEYTRUDA [Suspect]
     Active Substance: PEMBROLIZUMAB
     Indication: Oropharyngeal cancer stage IV
     Dosage: 200 MILLIGRAM, Q3W
     Route: 041
     Dates: start: 20200824, end: 20201025
  2. KEYTRUDA [Suspect]
     Active Substance: PEMBROLIZUMAB
     Dosage: 200 MILLIGRAM, Q3W
     Route: 041
     Dates: start: 20210113, end: 20210420
  3. KEYTRUDA [Suspect]
     Active Substance: PEMBROLIZUMAB
     Dosage: 200 MILLIGRAM, Q3W
     Route: 041
     Dates: start: 20220517, end: 20220719
  4. CISPLATIN [Suspect]
     Active Substance: CISPLATIN
     Indication: Oropharyngeal cancer stage IV
     Dosage: UNK
     Route: 065
     Dates: start: 20200824, end: 20201025
  5. FLUOROURACIL [Suspect]
     Active Substance: FLUOROURACIL
     Indication: Oropharyngeal cancer stage IV
     Dosage: UNK
     Route: 065
     Dates: start: 20200824, end: 20201025
  6. CETUXIMAB [Suspect]
     Active Substance: CETUXIMAB
     Dosage: UNK
     Route: 065
     Dates: start: 20210826, end: 20211215

REACTIONS (8)
  - Immune-mediated myocarditis [Fatal]
  - Atrioventricular block complete [Unknown]
  - Pneumonia [Recovered/Resolved]
  - Malignant neoplasm progression [Unknown]
  - Neuropathy peripheral [Unknown]
  - Cheilitis [Recovered/Resolved]
  - Stomatitis [Recovered/Resolved]
  - Fistula [Unknown]

NARRATIVE: CASE EVENT DATE: 20201025
